FAERS Safety Report 5502531-X (Version None)
Quarter: 2007Q4

REPORT INFORMATION
  Report Type: 
  Country: None (occurrence: None)
  Receive Date: 20071030
  Receipt Date: 20071016
  Transmission Date: 20080405
  Serious: No
  Sender: FDA-Public Use
  Company Number: US-BOEHRINGER INGELHEIM PHARMACEUTICALS, INC.-2007-BP-22820BP

PATIENT
  Sex: Male

DRUGS (5)
  1. COMBIVENT [Suspect]
     Indication: CHRONIC OBSTRUCTIVE PULMONARY DISEASE
     Route: 055
     Dates: start: 20010101
  2. ANTIVERT [Concomitant]
     Indication: DIZZINESS
  3. PANMIST LA [Concomitant]
     Indication: SINUS DISORDER
  4. XANAX [Concomitant]
  5. DUONEB [Concomitant]

REACTIONS (1)
  - DRUG INEFFECTIVE [None]
